FAERS Safety Report 11003125 (Version 1)
Quarter: 2015Q2

REPORT INFORMATION
  Report Type: Spontaneous
  Country: GB (occurrence: GB)
  Receive Date: 20150409
  Receipt Date: 20150409
  Transmission Date: 20150821
  Serious: Yes (Disabling, Other)
  Sender: FDA-Public Use
  Company Number: GB-AUROBINDO-AUR-APL-2015-03004

PATIENT
  Age: 19 Year
  Sex: Female
  Weight: 56 kg

DRUGS (2)
  1. LEVOTHYROXINE [Concomitant]
     Active Substance: LEVOTHYROXINE
     Indication: PRODUCT USED FOR UNKNOWN INDICATION
     Dosage: UNK
     Route: 065
  2. CIPROFLOXACIN. [Suspect]
     Active Substance: CIPROFLOXACIN
     Indication: URINARY TRACT INFECTION
     Dosage: 500 MG, ONCE A DAY
     Route: 048
     Dates: start: 20100326, end: 20100328

REACTIONS (6)
  - Abnormal dreams [Recovered/Resolved]
  - Tendonitis [Recovered/Resolved]
  - Constipation [Recovered/Resolved]
  - Mental disorder [Recovered/Resolved]
  - Anal fissure [Recovering/Resolving]
  - Paranoia [Recovered/Resolved]

NARRATIVE: CASE EVENT DATE: 20100326
